FAERS Safety Report 21904584 (Version 2)
Quarter: 2023Q2

REPORT INFORMATION
  Report Type: Spontaneous
  Country: JP (occurrence: JP)
  Receive Date: 20230124
  Receipt Date: 20230503
  Transmission Date: 20230721
  Serious: Yes (Death, Other)
  Sender: FDA-Public Use
  Company Number: JP-MSD-2301JPN002636J

PATIENT
  Age: 56 Year
  Sex: Female

DRUGS (2)
  1. KEYTRUDA [Suspect]
     Active Substance: PEMBROLIZUMAB
     Indication: Endometrial adenocarcinoma
     Dosage: 200 MILLIGRAM, Q3W
     Route: 041
     Dates: start: 20221019, end: 2022
  2. LENVATINIB MESYLATE [Suspect]
     Active Substance: LENVATINIB MESYLATE
     Indication: Endometrial adenocarcinoma
     Dosage: 20 MILLIGRAM, QD
     Route: 048
     Dates: start: 20221019, end: 2022

REACTIONS (1)
  - Malignant neoplasm progression [Fatal]

NARRATIVE: CASE EVENT DATE: 20220101
